FAERS Safety Report 4658367-5 (Version None)
Quarter: 2005Q2

REPORT INFORMATION
  Report Type: 
  Country: None (occurrence: None)
  Receive Date: 20050509
  Receipt Date: 20050426
  Transmission Date: 20051028
  Serious: Yes (Death, Life-Threatening)
  Sender: FDA-Public Use
  Company Number: MED000117

PATIENT
  Age: 46 Year
  Sex: Male

DRUGS (3)
  1. LACTATED RINGER'S [Suspect]
     Dosage: 150 CC; QH; INTRAVENOUS
     Route: 042
     Dates: start: 20050425, end: 20050425
  2. CEFOTAN [Suspect]
     Dosage: 2 GM; ONCE; INTRAVENOUS
     Route: 042
     Dates: start: 20050425, end: 20050425
  3. DS 1/2 NS W/KCL [Concomitant]

REACTIONS (6)
  - CARDIO-RESPIRATORY ARREST [None]
  - HEART RATE INCREASED [None]
  - HYPERTENSION [None]
  - LOSS OF CONSCIOUSNESS [None]
  - PARAESTHESIA [None]
  - TREMOR [None]
